FAERS Safety Report 9997773 (Version 2)
Quarter: 2014Q1

REPORT INFORMATION
  Report Type: Report from Study
  Country: US (occurrence: US)
  Receive Date: 20140311
  Receipt Date: 20140311
  Transmission Date: 20141002
  Serious: Yes (Death, Life-Threatening)
  Sender: FDA-Public Use
  Company Number: US-UCBSA-093632

PATIENT
  Age: 30 Year
  Sex: Female
  Weight: 62.6 kg

DRUGS (10)
  1. LACOSAMIDE [Suspect]
     Indication: EPILEPSY
     Dosage: COMMERCIAL PRODUCT
     Route: 048
     Dates: start: 20130823
  2. LACOSAMIDE [Suspect]
     Indication: EPILEPSY
     Route: 048
     Dates: start: 20130205, end: 20130822
  3. LACOSAMIDE [Suspect]
     Indication: EPILEPSY
     Route: 048
     Dates: start: 20120203, end: 20130204
  4. LACOSAMIDE [Suspect]
     Indication: EPILEPSY
     Route: 048
     Dates: start: 20111013, end: 20120202
  5. VITAMIN E [Concomitant]
     Indication: VITAMIN SUPPLEMENTATION
     Dosage: 1 TAB ONCE DAILY
     Dates: start: 2006
  6. VITAMIN D [Concomitant]
     Indication: VITAMIN SUPPLEMENTATION
     Dosage: DOSE: 1000
     Dates: start: 201009
  7. WOMEN^S MULTIVITAMIN [Concomitant]
     Indication: VITAMIN SUPPLEMENTATION
     Dosage: 1 CAPS QD
     Dates: start: 2006
  8. CLOBETASOL PROPIONATE [Concomitant]
     Indication: DERMATITIS
     Dosage: 005%
     Dates: start: 20110902
  9. ALBUTEROL [Concomitant]
     Dosage: 2 PUFF, ONCE IN 6 HOURS
     Route: 055
     Dates: start: 20130416, end: 20130606
  10. PREMPRO [Concomitant]
     Indication: HORMONE REPLACEMENT THERAPY
     Dates: start: 20120814, end: 20130606

REACTIONS (1)
  - Metastatic squamous cell carcinoma [Fatal]
